FAERS Safety Report 10755778 (Version 1)
Quarter: 2015Q1

REPORT INFORMATION
  Report Type: Spontaneous
  Country: JP (occurrence: JP)
  Receive Date: 20150202
  Receipt Date: 20150202
  Transmission Date: 20150721
  Serious: Yes (Other)
  Sender: FDA-Public Use
  Company Number: JP-ASTRAZENECA-2015SE07879

PATIENT
  Sex: Male

DRUGS (2)
  1. XYLOCAINE [Suspect]
     Active Substance: LIDOCAINE HYDROCHLORIDE
     Indication: LOCAL ANAESTHESIA
     Dosage: DOSE UNKNOWN
     Route: 045
  2. BOSMIN [Concomitant]
     Active Substance: EPINEPHRINE
     Dosage: DOSE UNKNOWN
     Route: 065

REACTIONS (2)
  - Cerebral haemorrhage [Unknown]
  - Visual field defect [Unknown]
